FAERS Safety Report 4504449-8 (Version None)
Quarter: 2004Q4

REPORT INFORMATION
  Report Type: 
  Country: None (occurrence: None)
  Receive Date: 20041116
  Receipt Date: 20041110
  Transmission Date: 20050328
  Serious: Yes (Other)
  Sender: FDA-Public Use
  Company Number: US-JNJFOC-20041102599

PATIENT
  Sex: Male

DRUGS (7)
  1. PEPCID COMPLETE [Suspect]
     Indication: DYSPEPSIA
     Dosage: 1-2 DAILY
     Dates: start: 20040101
  2. ATENOLOL [Suspect]
     Indication: HYPERTENSION
     Dates: end: 20040101
  3. GLYBURIDE [Suspect]
     Indication: DIABETES MELLITUS
     Dates: end: 20040101
  4. PERPHENAZINE [Concomitant]
  5. METFORMIN HCL [Concomitant]
  6. UNIVASC [Concomitant]
  7. BLOOD PRESSURE MEDICATION (ANTIHYPERTENSIVES) [Concomitant]

REACTIONS (1)
  - DRUG WITHDRAWAL SYNDROME [None]
